FAERS Safety Report 6857201-2 (Version None)
Quarter: 2010Q3

REPORT INFORMATION
  Report Type: 
  Country: None (occurrence: None)
  Receive Date: 20100719
  Receipt Date: 20100709
  Transmission Date: 20110219
  Serious: Yes (Other)
  Sender: FDA-Public Use
  Company Number: FR-PFIZER INC-2010086354

PATIENT
  Age: 50 Year
  Sex: Male

DRUGS (1)
  1. TAHOR [Suspect]
     Dosage: 10

REACTIONS (5)
  - BLOOD CREATINE PHOSPHOKINASE INCREASED [None]
  - FATIGUE [None]
  - MALAISE [None]
  - PAIN [None]
  - RHABDOMYOLYSIS [None]
